FAERS Safety Report 6082696-4 (Version None)
Quarter: 2009Q1

REPORT INFORMATION
  Report Type: 
  Country: None (occurrence: None)
  Receive Date: 20090218
  Receipt Date: 20090212
  Transmission Date: 20090719
  Serious: Yes (Hospitalization)
  Sender: FDA-Public Use
  Company Number: PHBS2009NL00808

PATIENT
  Age: 28 Year
  Sex: Female

DRUGS (4)
  1. OXYTOCIN [Suspect]
     Indication: DELIVERY
  2. DIURETICS [Suspect]
  3. ACE INHIBITOR NOS [Suspect]
  4. SULPROSTONE [Suspect]
     Indication: UTERINE ATONY

REACTIONS (21)
  - ACUTE RESPIRATORY FAILURE [None]
  - BLOOD LACTATE DEHYDROGENASE INCREASED [None]
  - CARDIAC DISORDER [None]
  - CARDIAC FAILURE [None]
  - CREPITATIONS [None]
  - DYSPNOEA [None]
  - EJECTION FRACTION DECREASED [None]
  - ENDOTRACHEAL INTUBATION [None]
  - HEART RATE INCREASED [None]
  - HYPERTENSION [None]
  - HYPOXIA [None]
  - LEUKOCYTOSIS [None]
  - METABOLIC ACIDOSIS [None]
  - OXYGEN SATURATION DECREASED [None]
  - POST PROCEDURAL COMPLICATION [None]
  - POSTPARTUM HAEMORRHAGE [None]
  - PULMONARY OEDEMA [None]
  - RESPIRATORY ALKALOSIS [None]
  - RETAINED PLACENTA OR MEMBRANES [None]
  - UTERINE ATONY [None]
  - UTERINE DILATION AND CURETTAGE [None]
